FAERS Safety Report 17754974 (Version 2)
Quarter: 2020Q2

REPORT INFORMATION
  Report Type: Spontaneous
  Country: US (occurrence: US)
  Receive Date: 20200507
  Receipt Date: 20200617
  Transmission Date: 20200714
  Serious: Yes (Other)
  Sender: FDA-Public Use
  Company Number: NVSC2020US120365

PATIENT
  Age: 68 Year
  Sex: Female

DRUGS (3)
  1. BEOVU [Suspect]
     Active Substance: BROLUCIZUMAB-DBLL
     Dosage: 6 MG
     Route: 065
     Dates: start: 20200210
  2. BEOVU [Suspect]
     Active Substance: BROLUCIZUMAB-DBLL
     Dosage: 6 MG
     Route: 065
     Dates: start: 20200323
  3. BEOVU [Suspect]
     Active Substance: BROLUCIZUMAB-DBLL
     Indication: NEOVASCULAR AGE-RELATED MACULAR DEGENERATION
     Dosage: 6 MG
     Route: 065
     Dates: start: 20200113

REACTIONS (6)
  - Vitreous floaters [Recovering/Resolving]
  - Uveitis [Recovering/Resolving]
  - Vision blurred [Recovering/Resolving]
  - Anterior chamber flare [Recovering/Resolving]
  - Anterior chamber cell [Recovering/Resolving]
  - Intra-ocular injection complication [Recovering/Resolving]

NARRATIVE: CASE EVENT DATE: 20200324
